FAERS Safety Report 7732319-0 (Version None)
Quarter: 2011Q3

REPORT INFORMATION
  Report Type: 
  Country: None (occurrence: None)
  Receive Date: 20110906
  Receipt Date: 20110822
  Transmission Date: 20111222
  Serious: Yes (Other)
  Sender: FDA-Public Use
  Company Number: JP-WATSON-2011-14009

PATIENT
  Age: 30 Year
  Sex: Male

DRUGS (2)
  1. RISPERIDONE [Suspect]
     Indication: SCHIZOPHRENIA, PARANOID TYPE
     Dosage: 4 MG, UNK
  2. RISPERIDONE [Suspect]
     Dosage: 2 MG, UNK

REACTIONS (2)
  - DISTURBANCE IN ATTENTION [None]
  - DRUG INEFFECTIVE [None]
